FAERS Safety Report 11102556 (Version 1)
Quarter: 2015Q2

REPORT INFORMATION
  Report Type: Spontaneous
  Country: US (occurrence: US)
  Receive Date: 20150511
  Receipt Date: 20150511
  Transmission Date: 20150821
  Serious: Yes (Death)
  Sender: FDA-Public Use
  Company Number: US-BAYER-2015-183316

PATIENT
  Age: 48 Year
  Sex: Female
  Weight: 69 kg

DRUGS (17)
  1. ACETAMINOPHEN. [Suspect]
     Active Substance: ACETAMINOPHEN
  2. ACEPROMAZINE [Concomitant]
     Active Substance: ACEPROMAZINE
     Route: 048
  3. CALTRATE +D [CALCIUM CARBONATE,VITAMIN D NOS] [Concomitant]
  4. PROTONIX [Concomitant]
     Active Substance: PANTOPRAZOLE SODIUM
  5. BAYER GENUINE ASPIRIN [Suspect]
     Active Substance: ASPIRIN
     Route: 048
  6. ZYRTEC [CETIRIZINE HYDROCHLORIDE] [Concomitant]
  7. TRAZODONE [Suspect]
     Active Substance: TRAZODONE HYDROCHLORIDE
     Indication: DEPRESSION
     Dosage: 50 MG, QD
     Route: 048
     Dates: start: 200510
  8. AMBIEN [Suspect]
     Active Substance: ZOLPIDEM TARTRATE
     Indication: INSOMNIA
     Dosage: 10 MG, QD
     Route: 048
  9. FLUOXETINE [Concomitant]
     Active Substance: FLUOXETINE\FLUOXETINE HYDROCHLORIDE
  10. ALEVE [Suspect]
     Active Substance: NAPROXEN SODIUM
  11. ESTROGENS CONJUGATED W/MEDROXYPROGESTERONE [Suspect]
     Active Substance: ESTROGENS, CONJUGATED\MEDROXYPROGESTERONE
     Indication: MENOPAUSAL SYMPTOMS
     Dosage: 1 DF, QD
     Route: 048
     Dates: start: 20060522, end: 20061115
  12. OXYCODONE [Suspect]
     Active Substance: OXYCODONE
     Dosage: UNKNOWN
  13. LEXAPRO [Concomitant]
     Active Substance: ESCITALOPRAM OXALATE
  14. LUTEIN [Concomitant]
     Active Substance: LUTEIN
  15. ESTROVEN MULTI-VITAMIN [Concomitant]
  16. LIPITOR [Concomitant]
     Active Substance: ATORVASTATIN CALCIUM
  17. INDERAL [Concomitant]
     Active Substance: PROPRANOLOL HYDROCHLORIDE

REACTIONS (5)
  - Intentional overdose [Fatal]
  - Completed suicide [None]
  - Completed suicide [Fatal]
  - Overdose [None]
  - Drug interaction [None]

NARRATIVE: CASE EVENT DATE: 20061115
